FAERS Safety Report 7714481-9 (Version None)
Quarter: 2011Q3

REPORT INFORMATION
  Report Type: 
  Country: None (occurrence: None)
  Receive Date: 20110829
  Receipt Date: 20110816
  Transmission Date: 20111222
  Serious: No
  Sender: FDA-Public Use
  Company Number: FR-JNJFOC-20110808782

PATIENT
  Age: 77 Year
  Sex: Male

DRUGS (2)
  1. DURAGESIC-100 [Suspect]
     Route: 062
     Dates: start: 20110801
  2. DURAGESIC-100 [Suspect]
     Indication: METASTASIS
     Route: 062
     Dates: start: 20110801, end: 20110801

REACTIONS (3)
  - DRUG PRESCRIBING ERROR [None]
  - SOMNOLENCE [None]
  - WRONG TECHNIQUE IN DRUG USAGE PROCESS [None]
